FAERS Safety Report 21090418 (Version 1)
Quarter: 2022Q3

REPORT INFORMATION
  Report Type: Report from Study
  Country: US (occurrence: US)
  Receive Date: 20220715
  Receipt Date: 20220715
  Transmission Date: 20221027
  Serious: Yes (Death, Life-Threatening, Hospitalization, Other)
  Sender: FDA-Public Use
  Company Number: US-ABBVIE-22P-163-4400759-00

PATIENT
  Age: 81 Year
  Sex: Male
  Weight: 85 kg

DRUGS (3)
  1. IBRUTINIB [Suspect]
     Active Substance: IBRUTINIB
     Indication: Chronic lymphocytic leukaemia
     Dosage: FOR 15 CYCLES
     Route: 048
     Dates: start: 20220405, end: 20220420
  2. VENETOCLAX [Suspect]
     Active Substance: VENETOCLAX
     Indication: Chronic lymphocytic leukaemia
     Dosage: 20 MG D1-7 C3, 50 MG D8-14 C3, 100 MG D15-21 C3, 200 MG D22-28 C3, 400 MG D1-28 C4-14
     Route: 048
     Dates: start: 20211129, end: 20220419
  3. OBINUTUZUMAB [Concomitant]
     Active Substance: OBINUTUZUMAB
     Indication: Chronic lymphocytic leukaemia
     Dosage: 100 MG C1D1, 900 MG IV C1D2, 1000 MG C1D8 + C1D15, C2-6D1
     Route: 042
     Dates: start: 20211129, end: 20220405

REACTIONS (10)
  - Death [Fatal]
  - White blood cell count decreased [Recovered/Resolved]
  - Hypoxia [Unknown]
  - Neutropenia [Recovered/Resolved]
  - COVID-19 pneumonia [Unknown]
  - Dyspnoea [Unknown]
  - Febrile neutropenia [Recovered/Resolved]
  - Hypertension [Unknown]
  - Hypoalbuminaemia [Recovered/Resolved]
  - Lymphocyte count decreased [Unknown]

NARRATIVE: CASE EVENT DATE: 20220419
